FAERS Safety Report 4673420-8 (Version None)
Quarter: 2005Q2

REPORT INFORMATION
  Report Type: 
  Country: None (occurrence: None)
  Receive Date: 20050525
  Receipt Date: 20050428
  Transmission Date: 20051028
  Serious: Yes (Other)
  Sender: FDA-Public Use
  Company Number: US-GLAXOSMITHKLINE-A0556313A

PATIENT
  Age: 61 Year
  Sex: Male

DRUGS (2)
  1. REQUIP [Suspect]
     Indication: PARKINSON'S DISEASE
     Route: 048
  2. STALEVO 100 [Concomitant]
     Indication: PARKINSON'S DISEASE
     Dosage: 1TAB VARIABLE DOSE
     Route: 048

REACTIONS (3)
  - DRUG ADMINISTRATION ERROR [None]
  - HYPOMANIA [None]
  - OVERDOSE [None]
